FAERS Safety Report 9692838 (Version 2)
Quarter: 2013Q4

REPORT INFORMATION
  Report Type: Spontaneous
  Country: US (occurrence: US)
  Receive Date: 20131118
  Receipt Date: 20131205
  Transmission Date: 20140711
  Serious: No
  Sender: FDA-Public Use
  Company Number: US-ROXANE LABORATORIES, INC.-2013-RO-01833RO

PATIENT
  Sex: Female

DRUGS (1)
  1. BALSALAZIDE [Suspect]
     Indication: COLITIS ULCERATIVE

REACTIONS (3)
  - Nausea [Recovered/Resolved]
  - Discomfort [Recovered/Resolved]
  - Product substitution issue [Unknown]
